FAERS Safety Report 8075522-5 (Version None)
Quarter: 2012Q1

REPORT INFORMATION
  Report Type: 
  Country: None (occurrence: None)
  Receive Date: 20120127
  Receipt Date: 20120116
  Transmission Date: 20120608
  Serious: Yes (Hospitalization)
  Sender: FDA-Public Use
  Company Number: JP-BRISTOL-MYERS SQUIBB COMPANY-16351009

PATIENT
  Age: 50 Year
  Sex: Male

DRUGS (5)
  1. TRAZODONE HCL [Suspect]
  2. NITRAZEPAM [Suspect]
  3. CARBAMAZEPINE [Suspect]
  4. SELEGILINE [Suspect]
     Indication: DEPRESSION
     Dosage: 10 MG/DAILY
  5. VALPROATE SODIUM [Suspect]

REACTIONS (8)
  - INTENTIONAL OVERDOSE [None]
  - SUICIDE ATTEMPT [None]
  - COMA [None]
  - CONVULSION [None]
  - PNEUMONIA ASPIRATION [None]
  - CONFUSIONAL STATE [None]
  - MYOCLONUS [None]
  - HALLUCINATION, VISUAL [None]
